FAERS Safety Report 18556036 (Version 1)
Quarter: 2020Q4

REPORT INFORMATION
  Report Type: Other
  Country: HU (occurrence: HU)
  Receive Date: 20201127
  Receipt Date: 20201127
  Transmission Date: 20210114
  Serious: Yes (Other)
  Sender: FDA-Public Use
  Company Number: HU-ROCHE-2722836

PATIENT

DRUGS (1)
  1. RITUXIMAB. [Suspect]
     Active Substance: RITUXIMAB
     Indication: RETROPERITONEAL FIBROSIS
     Dosage: INDUCTION THERAPY
     Route: 065

REACTIONS (9)
  - Hypersensitivity [Unknown]
  - Intentional product use issue [Unknown]
  - Anaemia [Unknown]
  - Off label use [Unknown]
  - Autoimmune disorder [Unknown]
  - Neoplasm malignant [Unknown]
  - C-reactive protein increased [Unknown]
  - Red blood cell sedimentation rate increased [Unknown]
  - Renal impairment [Unknown]
